FAERS Safety Report 17539685 (Version 2)
Quarter: 2020Q2

REPORT INFORMATION
  Report Type: Spontaneous
  Country: US (occurrence: US)
  Receive Date: 20200313
  Receipt Date: 20200424
  Transmission Date: 20200713
  Serious: Yes (Other)
  Sender: FDA-Public Use
  Company Number: US-SUNOVION-2020SUN000803

PATIENT
  Age: 17 Year
  Sex: Female

DRUGS (2)
  1. LATUDA [Suspect]
     Active Substance: LURASIDONE HYDROCHLORIDE
     Indication: BIPOLAR II DISORDER
     Dosage: 60 MG, QD
     Route: 048
     Dates: start: 201909
  2. TOPAMAX [Concomitant]
     Active Substance: TOPIRAMATE
     Indication: BIPOLAR II DISORDER
     Dosage: UNK
     Dates: start: 201909, end: 201911

REACTIONS (2)
  - Off label use [Unknown]
  - Weight increased [Unknown]
